FAERS Safety Report 6459096-8 (Version None)
Quarter: 2009Q4

REPORT INFORMATION
  Report Type: 
  Country: None (occurrence: None)
  Receive Date: 20091125
  Receipt Date: 20091125
  Transmission Date: 20100525
  Serious: No
  Sender: FDA-Public Use
  Company Number: None

PATIENT
  Sex: Female
  Weight: 81.6475 kg

DRUGS (1)
  1. ROPIVICAINE [Suspect]
     Indication: POSTOPERATIVE ANALGESIA
     Dosage: 5-7 CC HR INTRA-ARTICULAR
     Route: 014
     Dates: start: 20090902, end: 20090904

REACTIONS (4)
  - ARTHRALGIA [None]
  - CHONDROLYSIS [None]
  - JOINT RANGE OF MOTION DECREASED [None]
  - MUSCULOSKELETAL STIFFNESS [None]
